FAERS Safety Report 8224360-9 (Version None)
Quarter: 2012Q1

REPORT INFORMATION
  Report Type: 
  Country: None (occurrence: None)
  Receive Date: 20120320
  Receipt Date: 20120320
  Transmission Date: 20120608
  Serious: Yes (Hospitalization)
  Sender: FDA-Public Use
  Company Number: None

PATIENT
  Age: 88 Year
  Sex: Female
  Weight: 110.5 kg

DRUGS (2)
  1. FONDAPARINUX SODIUM [Suspect]
     Indication: DEEP VEIN THROMBOSIS
     Dosage: 10 MG EVERY DAY SQ
     Route: 058
     Dates: start: 20120222, end: 20120229
  2. FONDAPARINUX SODIUM [Suspect]
     Indication: ATRIAL FIBRILLATION
     Dosage: 10 MG EVERY DAY SQ
     Route: 058
     Dates: start: 20120222, end: 20120229

REACTIONS (4)
  - HAEMORRHAGE [None]
  - POST PROCEDURAL COMPLICATION [None]
  - DEVICE DEPLOYMENT ISSUE [None]
  - HAEMATOMA [None]
